FAERS Safety Report 9325176 (Version 1)
Quarter: 2013Q2

REPORT INFORMATION
  Report Type: Report from Study
  Country: NL (occurrence: NL)
  Receive Date: 20130604
  Receipt Date: 20130604
  Transmission Date: 20140414
  Serious: Yes (Disabling)
  Sender: FDA-Public Use
  Company Number: NL-TEVA-409118ISR

PATIENT
  Age: 61 Year
  Sex: Female

DRUGS (8)
  1. MYOCET [Suspect]
  2. PACLITAXEL [Suspect]
     Indication: BREAST CANCER METASTATIC
     Dosage: 170 MILLIGRAM DAILY;
     Route: 042
     Dates: start: 20110812, end: 20111117
  3. BEVACIZUMAB [Suspect]
     Indication: BREAST CANCER METASTATIC
     Dosage: 1182 MILLIGRAM DAILY;
     Route: 042
     Dates: start: 20110812, end: 20120531
  4. CLONIDINE [Concomitant]
     Dates: start: 20110728
  5. MAGNESIUMOXIDE [Concomitant]
     Dates: start: 20110728
  6. OXYCODONE [Concomitant]
     Dates: start: 20120720
  7. TEMAZEPAM [Concomitant]
     Dates: start: 20120208
  8. OMEPRAZOLE [Concomitant]
     Dates: start: 20110710

REACTIONS (1)
  - Cholangitis suppurative [Recovered/Resolved]
